FAERS Safety Report 12950633 (Version 1)
Quarter: 2016Q4

REPORT INFORMATION
  Report Type: Spontaneous
  Country: US (occurrence: US)
  Receive Date: 20161116
  Receipt Date: 20161116
  Transmission Date: 20170207
  Serious: Yes (Hospitalization)
  Sender: FDA-Public Use
  Company Number: US-LUNDBECK-DKLU2022558

PATIENT
  Sex: Female

DRUGS (1)
  1. SABRIL [Suspect]
     Active Substance: VIGABATRIN
     Indication: INFANTILE SPASMS
     Dosage: MIX 3 PKTS W/30 ML OF WATER AND ADMINISTER 25 ML
     Route: 048
     Dates: start: 201108

REACTIONS (2)
  - Cystitis [Unknown]
  - Intestinal obstruction [Unknown]
